FAERS Safety Report 5008523-1 (Version None)
Quarter: 2006Q2

REPORT INFORMATION
  Report Type: 
  Country: None (occurrence: None)
  Receive Date: 20060523
  Receipt Date: 20060419
  Transmission Date: 20061013
  Serious: Yes (Hospitalization)
  Sender: FDA-Public Use
  Company Number: PHBS2006JP05902

PATIENT
  Age: 10 Year
  Sex: Male

DRUGS (3)
  1. CYCLOSPORINE [Suspect]
     Indication: RENAL TRANSPLANT
     Route: 065
  2. METHYLPREDNISOLONE [Suspect]
     Indication: RENAL TRANSPLANT
     Route: 048
  3. MYCOPHENOLATE MOFETIL [Suspect]
     Indication: RENAL TRANSPLANT
     Route: 048

REACTIONS (8)
  - BLOOD CREATINE PHOSPHOKINASE INCREASED [None]
  - DECUBITUS ULCER [None]
  - DYSURIA [None]
  - EPSTEIN-BARR VIRUS INFECTION [None]
  - MYALGIA [None]
  - MYELITIS [None]
  - PYREXIA [None]
  - VIRAL DNA TEST POSITIVE [None]
